FAERS Safety Report 23473530 (Version 1)
Quarter: 2024Q1

REPORT INFORMATION
  Report Type: Spontaneous
  Country: DE (occurrence: DE)
  Receive Date: 20240203
  Receipt Date: 20240203
  Transmission Date: 20240409
  Serious: Yes (Other)
  Sender: FDA-Public Use
  Company Number: None

PATIENT
  Age: 70 Year
  Sex: Female

DRUGS (26)
  1. ETOPOSIDE [Suspect]
     Active Substance: ETOPOSIDE
     Indication: Plasma cell myeloma
     Dosage: AS A PART OF DARA-KTD-PACE REGIMEN, SECOND
  2. DOXORUBICIN [Suspect]
     Active Substance: DOXORUBICIN
     Indication: Plasma cell myeloma
     Dosage: AS A PART OF DARA-KTD-PACE REGIMEN, THIRD
  3. CYCLOPHOSPHAMIDE [Suspect]
     Active Substance: CYCLOPHOSPHAMIDE
     Indication: Plasma cell myeloma
     Dosage: AS A PART OF DARA-KTD-PACE REGIMEN, FIRST
  4. THALIDOMIDE [Suspect]
     Active Substance: THALIDOMIDE
     Indication: Plasma cell myeloma
     Dosage: AS A PART OF DARA-KTD-PACE REGIMEN, THIRD
  5. CARFILZOMIB [Suspect]
     Active Substance: CARFILZOMIB
     Indication: Plasma cell myeloma
     Dosage: AS A PART OF DARA-KTD-PACE REGIMEN, THIRD
  6. PLATINOL [Suspect]
     Active Substance: CISPLATIN
     Indication: Plasma cell myeloma
     Dosage: AS A PART OF DARA-KTD-PACE REGIMEN, FIRST
  7. MELOXICAM [Suspect]
     Active Substance: MELOXICAM
     Indication: Plasma cell myeloma
  8. DARATUMUMAB [Suspect]
     Active Substance: DARATUMUMAB
     Indication: Plasma cell myeloma
     Dosage: AS A PART OF DARA-KTD-PACE REGIMEN, FIRST
  9. DEXAMETHASONE [Suspect]
     Active Substance: DEXAMETHASONE
     Indication: Plasma cell myeloma
     Dosage: AS A PART OF DARA-KTD-PACE REGIMEN, THIRD
  10. TECLISTAMAB [Suspect]
     Active Substance: TECLISTAMAB
     Indication: Plasma cell myeloma
  11. ETOPOSIDE [Suspect]
     Active Substance: ETOPOSIDE
     Indication: Plasma cell myeloma
     Dosage: AS A PART OF DARA-KTD-PACE REGIMEN, FIRST
  12. ETOPOSIDE [Suspect]
     Active Substance: ETOPOSIDE
     Indication: Plasma cell myeloma
     Dosage: AS A PART OF DARA-KTD-PACE REGIMEN, THIRD
  13. CYCLOPHOSPHAMIDE [Suspect]
     Active Substance: CYCLOPHOSPHAMIDE
     Indication: Plasma cell myeloma
     Dosage: AS A PART OF DARA-KTD-PACE REGIMEN, SECOND
  14. CYCLOPHOSPHAMIDE [Suspect]
     Active Substance: CYCLOPHOSPHAMIDE
     Indication: Plasma cell myeloma
     Dosage: AS A PART OF DARA-KTD-PACE REGIMEN, THIRD
  15. DEXAMETHASONE [Suspect]
     Active Substance: DEXAMETHASONE
     Indication: Plasma cell myeloma
     Dosage: AS A PART OF DARA-KTD-PACE REGIMEN, SECOND
  16. DEXAMETHASONE [Suspect]
     Active Substance: DEXAMETHASONE
     Indication: Plasma cell myeloma
     Dosage: AS A PART OF DARA-KTD-PACE REGIMEN, FIRST
  17. THALIDOMIDE [Suspect]
     Active Substance: THALIDOMIDE
     Indication: Plasma cell myeloma
     Dosage: AS A PART OF DARA-KTD-PACE REGIMEN, FIRST
  18. THALIDOMIDE [Suspect]
     Active Substance: THALIDOMIDE
     Indication: Plasma cell myeloma
     Dosage: AS A PART OF DARA-KTD-PACE REGIMEN, SECOND
  19. CARFILZOMIB [Suspect]
     Active Substance: CARFILZOMIB
     Indication: Plasma cell myeloma
     Dosage: AS A PART OF DARA-KTD-PACE REGIMEN, SECOND
  20. CARFILZOMIB [Suspect]
     Active Substance: CARFILZOMIB
     Indication: Plasma cell myeloma
     Dosage: AS A PART OF DARA-KTD-PACE REGIMEN, FIRST
  21. PLATINOL [Suspect]
     Active Substance: CISPLATIN
     Indication: Plasma cell myeloma
     Dosage: AS A PART OF DARA-KTD-PACE REGIMEN, THIRD
  22. PLATINOL [Suspect]
     Active Substance: CISPLATIN
     Indication: Plasma cell myeloma
     Dosage: AS A PART OF DARA-KTD-PACE REGIMEN, SECOND
  23. DOXORUBICIN [Suspect]
     Active Substance: DOXORUBICIN
     Indication: Plasma cell myeloma
     Dosage: AS A PART OF DARA-KTD-PACE REGIMEN, SECOND
  24. DOXORUBICIN [Suspect]
     Active Substance: DOXORUBICIN
     Indication: Plasma cell myeloma
     Dosage: AS A PART OF DARA-KTD-PACE REGIMEN, FIRST
  25. DARATUMUMAB [Suspect]
     Active Substance: DARATUMUMAB
     Indication: Plasma cell myeloma
     Dosage: AS A PART OF DARA-KTD-PACE REGIMEN, SECOND
  26. DARATUMUMAB [Suspect]
     Active Substance: DARATUMUMAB
     Indication: Plasma cell myeloma
     Dosage: AS A PART OF DARA-KTD-PACE REGIMEN, THIRD

REACTIONS (4)
  - Intervertebral discitis [Unknown]
  - Respiratory tract infection [Unknown]
  - Cytokine release syndrome [Recovered/Resolved]
  - White blood cell count increased [Unknown]
